FAERS Safety Report 19744062 (Version 1)
Quarter: 2021Q3

REPORT INFORMATION
  Report Type: Other
  Country: US (occurrence: US)
  Receive Date: 20210824
  Receipt Date: 20210824
  Transmission Date: 20211014
  Serious: No
  Sender: FDA-Public Use
  Company Number: US-ROCHE-2895814

PATIENT
  Age: 60 Year
  Sex: Female
  Weight: 145.28 kg

DRUGS (1)
  1. OCREVUS [Suspect]
     Active Substance: OCRELIZUMAB
     Indication: RELAPSING MULTIPLE SCLEROSIS
     Dosage: PRESCRIBED WITH INIITAL DOSE OF 300 MG ON DAY 1 AND DAY 15 AND LATER SUBSEQUENT DOSE OF 600 MG EVERY
     Route: 042
     Dates: start: 2019

REACTIONS (1)
  - COVID-19 [Recovered/Resolved]

NARRATIVE: CASE EVENT DATE: 20210128
